FAERS Safety Report 19304372 (Version 2)
Quarter: 2021Q2

REPORT INFORMATION
  Report Type: Spontaneous
  Country: US (occurrence: US)
  Receive Date: 20210526
  Receipt Date: 20210531
  Transmission Date: 20210717
  Serious: Yes (Life-Threatening)
  Sender: FDA-Public Use
  Company Number: US-ROCHE-2835332

PATIENT
  Age: 77 Year
  Sex: Female
  Weight: 56.3 kg

DRUGS (12)
  1. UBIQUINOL CO Q10 [Concomitant]
     Active Substance: UBIQUINOL
  2. DALFAMPRIDINE. [Concomitant]
     Active Substance: DALFAMPRIDINE
  3. VITAMIN E [Concomitant]
     Active Substance: .ALPHA.-TOCOPHEROL
  4. VITAMIN D3 [Concomitant]
     Active Substance: CHOLECALCIFEROL
  5. BACLOFEN. [Concomitant]
     Active Substance: BACLOFEN
  6. BIOTIN [Concomitant]
     Active Substance: BIOTIN
  7. OCREVUS [Suspect]
     Active Substance: OCRELIZUMAB
     Indication: MULTIPLE SCLEROSIS
     Route: 065
  8. ROPINIROLE. [Concomitant]
     Active Substance: ROPINIROLE
  9. VASELINE PURE [Concomitant]
     Active Substance: PETROLATUM
  10. VITAMIN D [ERGOCALCIFEROL] [Concomitant]
     Active Substance: ERGOCALCIFEROL
  11. FISH OIL [Concomitant]
     Active Substance: FISH OIL
  12. OMEGA 3 [FISH OIL] [Concomitant]
     Active Substance: FISH OIL

REACTIONS (2)
  - Squamous cell carcinoma of skin [Unknown]
  - Drug hypersensitivity [Unknown]

NARRATIVE: CASE EVENT DATE: 202011
